FAERS Safety Report 20040187 (Version 1)
Quarter: 2021Q4

REPORT INFORMATION
  Report Type: Report from Study
  Country: NL (occurrence: NL)
  Receive Date: 20211106
  Receipt Date: 20211106
  Transmission Date: 20220303
  Serious: Yes (Congenital Anomaly)
  Sender: FDA-Public Use
  Company Number: NL-002147023-NVSC2021NL244891

PATIENT

DRUGS (2)
  1. ERENUMAB [Suspect]
     Active Substance: ERENUMAB
     Indication: Foetal exposure during pregnancy
     Dosage: MATERNAL DOSE: 140 MG, EVERY 4 WEEKS
     Route: 064
  2. MESALAMINE [Concomitant]
     Active Substance: MESALAMINE
     Indication: Foetal exposure during pregnancy
     Dosage: MATERNAL DOSE: 500 MG, QD
     Route: 064

REACTIONS (2)
  - Pulmonary malformation [Not Recovered/Not Resolved]
  - Foetal exposure during pregnancy [Unknown]
